FAERS Safety Report 18582409 (Version 2)
Quarter: 2020Q4

REPORT INFORMATION
  Report Type: Spontaneous
  Country: SE (occurrence: SE)
  Receive Date: 20201205
  Receipt Date: 20201224
  Transmission Date: 20210114
  Serious: Yes (Other)
  Sender: FDA-Public Use
  Company Number: SE-AUROBINDO-AUR-APL-2020-059364

PATIENT
  Age: 25 Year
  Sex: Female

DRUGS (5)
  1. ISOTRETINOIN. [Suspect]
     Active Substance: ISOTRETINOIN
     Indication: ACNE
     Dosage: 30 MILLIGRAM, ONCE A DAY ((3 CAPSULES ONCE PER DAY)
     Route: 065
     Dates: start: 20201030
  2. ISOTRETINOIN. [Suspect]
     Active Substance: ISOTRETINOIN
     Dosage: 20 MILLIGRAM, ONCE A DAY (20 MG, QD)
     Route: 065
  3. ISOTRETINOIN. [Suspect]
     Active Substance: ISOTRETINOIN
     Dosage: UNK
     Route: 065
     Dates: start: 20201029
  4. ISOTRETINOIN. [Suspect]
     Active Substance: ISOTRETINOIN
     Dosage: 30 MILLIGRAM, ONCE A DAY
     Route: 065
  5. METOPROLOL FILM-COATED TABLET [Suspect]
     Active Substance: METOPROLOL
     Indication: CARDIAC DISORDER
     Dosage: 75 MILLIGRAM (75 MG) ((50MG+ 25 MG) ( 2 TABLETS ONCE PER DAY)
     Route: 065
     Dates: start: 2009

REACTIONS (3)
  - Dyspnoea [Recovered/Resolved]
  - Drug ineffective [Recovered/Resolved]
  - Heart rate abnormal [Recovered/Resolved]

NARRATIVE: CASE EVENT DATE: 202011
